FAERS Safety Report 4684010-5 (Version None)
Quarter: 2005Q2

REPORT INFORMATION
  Report Type: 
  Country: None (occurrence: None)
  Receive Date: 20050602
  Receipt Date: 20050427
  Transmission Date: 20051028
  Serious: No
  Sender: FDA-Public Use
  Company Number: MPS1-10367

PATIENT
  Age: 8 Year
  Sex: Female
  Weight: 21 kg

DRUGS (4)
  1. ALDURAZYME [Suspect]
     Indication: MUCOPOLYSACCHARIDOSIS I
     Dosage: 14.5 MG QWK IV
     Route: 042
     Dates: start: 20030624
  2. LORAZEPAM [Concomitant]
  3. RITALIN [Concomitant]
  4. ATENOLOL [Concomitant]

REACTIONS (2)
  - EMOTIONAL DISORDER [None]
  - HEADACHE [None]
